FAERS Safety Report 10268879 (Version 4)
Quarter: 2014Q3

REPORT INFORMATION
  Report Type: Spontaneous
  Country: IT (occurrence: IT)
  Receive Date: 20140630
  Receipt Date: 20140905
  Transmission Date: 20150326
  Serious: Yes (Hospitalization, Other)
  Sender: FDA-Public Use
  Company Number: IT-PFIZER INC-2014178705

PATIENT
  Age: 79 Year
  Sex: Female

DRUGS (6)
  1. LYRICA [Suspect]
     Active Substance: PREGABALIN
     Indication: SCIATICA
     Dosage: 75 MG, DAILY
     Route: 048
     Dates: start: 20140405, end: 20140419
  2. NIMESULIDE [Interacting]
     Active Substance: NIMESULIDE
     Indication: MUSCULOSKELETAL PAIN
     Dosage: UP TO SEVEN ASSUMPTIONS FOR WEEK
  3. LYRICA [Interacting]
     Active Substance: PREGABALIN
     Indication: SPINAL OSTEOARTHRITIS
  4. TELMISARTAN, HYDROCHLOROTHIAZIDE [Interacting]
     Active Substance: HYDROCHLOROTHIAZIDE\TELMISARTAN
     Indication: HYPERTENSION
     Dosage: UNK
  5. CLOPIXOL (DECANOATE) [Concomitant]
     Indication: ABNORMAL BEHAVIOUR
     Dosage: UNK
     Route: 048
  6. TALOFEN [Concomitant]
     Active Substance: PROMAZINE HYDROCHLORIDE
     Indication: ABNORMAL BEHAVIOUR
     Dosage: UNK
     Route: 048

REACTIONS (7)
  - Polydipsia [Unknown]
  - Drug interaction [Unknown]
  - Hyponatraemia [Recovered/Resolved]
  - Hypokalaemia [Recovered/Resolved]
  - Confusional state [Recovering/Resolving]
  - Ischaemia [Unknown]
  - Polyuria [Unknown]

NARRATIVE: CASE EVENT DATE: 20140419
